FAERS Safety Report 10784922 (Version 1)
Quarter: 2015Q1

REPORT INFORMATION
  Report Type: Spontaneous
  Country: US (occurrence: US)
  Receive Date: 20150211
  Receipt Date: 20150211
  Transmission Date: 20150721
  Serious: No
  Sender: FDA-Public Use
  Company Number: US-GLAXOSMITHKLINE-A1064156A

PATIENT

DRUGS (6)
  1. ANTI-PSYCHOTIC MEDICATION [Concomitant]
     Active Substance: UNSPECIFIED INGREDIENT
  2. LATUDA [Interacting]
     Active Substance: LURASIDONE HYDROCHLORIDE
     Indication: BIPOLAR DISORDER
     Dosage: DOSE WAS DECREASED ON 30 JAN 2013 TO 20 MG
     Route: 048
     Dates: start: 20140104, end: 20140131
  3. COGENTIN [Interacting]
     Active Substance: BENZTROPINE MESYLATE
     Indication: PRODUCT USED FOR UNKNOWN INDICATION
     Dosage: INCREASED IN JAN 2014 TO 1.5 MG
     Dates: start: 201310, end: 20140131
  4. LAMICTAL [Suspect]
     Active Substance: LAMOTRIGINE
     Indication: PRODUCT USED FOR UNKNOWN INDICATION
     Route: 065
     Dates: end: 20140131
  5. ABILIFY [Concomitant]
     Active Substance: ARIPIPRAZOLE
     Dates: end: 20140104
  6. WELLBUTRIN [Interacting]
     Active Substance: BUPROPION HYDROCHLORIDE
     Indication: PRODUCT USED FOR UNKNOWN INDICATION
     Route: 065
     Dates: end: 20140131

REACTIONS (6)
  - Drug hypersensitivity [Unknown]
  - Rash [Recovering/Resolving]
  - Drug interaction [Unknown]
  - Eye movement disorder [Recovered/Resolved]
  - Nystagmus [Recovering/Resolving]
  - Vision blurred [Unknown]
